FAERS Safety Report 9368869 (Version 3)
Quarter: 2013Q3

REPORT INFORMATION
  Report Type: Spontaneous
  Country: JP (occurrence: JP)
  Receive Date: 20130626
  Receipt Date: 20130814
  Transmission Date: 20140515
  Serious: Yes (Hospitalization)
  Sender: FDA-Public Use
  Company Number: JP-ROCHE-1240540

PATIENT
  Age: 78 Year
  Sex: Female
  Weight: 46 kg

DRUGS (12)
  1. MIRCERA [Suspect]
     Indication: NEPHROGENIC ANAEMIA
     Route: 042
     Dates: start: 20130401
  2. FOLIAMIN [Concomitant]
     Indication: ANAEMIA
     Route: 065
     Dates: start: 201305, end: 201306
  3. DOPS [Concomitant]
     Route: 048
  4. RISUMIC [Concomitant]
     Route: 048
  5. EPADEL [Concomitant]
     Route: 048
  6. ZYLORIC [Concomitant]
     Route: 048
  7. CEROCRAL [Concomitant]
     Route: 048
  8. ALLEGRA [Concomitant]
     Route: 048
  9. CINACALCET HYDROCHLORIDE [Concomitant]
     Route: 048
  10. WARFARIN [Concomitant]
     Route: 048
  11. NEXIUM [Concomitant]
     Route: 048
  12. MYSLEE [Concomitant]
     Route: 048

REACTIONS (1)
  - Anaemia [Not Recovered/Not Resolved]
